FAERS Safety Report 4717006-5 (Version None)
Quarter: 2005Q3

REPORT INFORMATION
  Report Type: 
  Country: None (occurrence: None)
  Receive Date: 20050719
  Receipt Date: 20050706
  Transmission Date: 20060218
  Serious: Yes (Hospitalization)
  Sender: FDA-Public Use
  Company Number: FR-JNJFOC-20050700859

PATIENT
  Age: 50 Year
  Sex: Male

DRUGS (3)
  1. SPORANOX [Suspect]
     Indication: ASPERGILLOMA
     Route: 048
     Dates: start: 20050301
  2. BRONCHODUAL [Concomitant]
     Route: 055
  3. BRONCHODUAL [Concomitant]
     Route: 055

REACTIONS (3)
  - BRONCHOSPASM [None]
  - HYPEREOSINOPHILIC SYNDROME [None]
  - RESPIRATORY FAILURE [None]
